FAERS Safety Report 22615229 (Version 1)
Quarter: 2023Q2

REPORT INFORMATION
  Report Type: Spontaneous
  Country: US (occurrence: US)
  Receive Date: 20230619
  Receipt Date: 20230619
  Transmission Date: 20230722
  Serious: Yes (Hospitalization, Other)
  Sender: FDA-Public Use
  Company Number: US-UCBSA-2023030371

PATIENT
  Age: 35 Year
  Sex: Female

DRUGS (5)
  1. BRIVIACT [Suspect]
     Active Substance: BRIVARACETAM
     Indication: Product used for unknown indication
     Dosage: UNK
  2. INGREZZA [Concomitant]
     Active Substance: VALBENAZINE
     Indication: Tardive dyskinesia
     Dosage: 40 MILLIGRAM, ONCE DAILY (QD)
     Dates: start: 20210723, end: 20210729
  3. INGREZZA [Concomitant]
     Active Substance: VALBENAZINE
     Dosage: 80 MILLIGRAM, ONCE DAILY (QD)
     Dates: start: 20210730, end: 20211012
  4. INGREZZA [Concomitant]
     Active Substance: VALBENAZINE
     Dosage: 40 MILLIGRAM, ONCE DAILY (QD)
     Dates: start: 20211013, end: 20211215
  5. INGREZZA [Concomitant]
     Active Substance: VALBENAZINE
     Dosage: UNK

REACTIONS (1)
  - Seizure [Unknown]

NARRATIVE: CASE EVENT DATE: 20220811
